FAERS Safety Report 7145377-1 (Version None)
Quarter: 2010Q4

REPORT INFORMATION
  Report Type: 
  Country: None (occurrence: None)
  Receive Date: 20101208
  Receipt Date: 20101130
  Transmission Date: 20110411
  Serious: Yes (Other)
  Sender: FDA-Public Use
  Company Number: US-ROCHE-734187

PATIENT
  Sex: Female
  Weight: 59 kg

DRUGS (4)
  1. BONIVA [Suspect]
     Indication: OSTEOPOROSIS
     Route: 042
     Dates: start: 20081120, end: 20101001
  2. SULAR [Concomitant]
     Indication: HYPERTENSION
     Dosage: DOSE: 8.5 DAILY, DRUG REPORTED AS SULARS
     Route: 048
     Dates: start: 19970101
  3. SYNTHROID [Concomitant]
     Indication: HYPOTHYROIDISM
     Dosage: DOSE: 0.15 DAILY
     Route: 048
     Dates: start: 19970101
  4. HYDROCHLOROTHIAZIDE [Concomitant]
     Indication: HYPERTENSION
     Route: 048
     Dates: start: 19970101

REACTIONS (1)
  - FASCIITIS [None]
